FAERS Safety Report 9462193 (Version 1)
Quarter: 2013Q3

REPORT INFORMATION
  Report Type: Spontaneous
  Country: US (occurrence: None)
  Receive Date: 20130815
  Receipt Date: 20130815
  Transmission Date: 20140515
  Serious: Yes (Hospitalization)
  Sender: FDA-Public Use
  Company Number: None

PATIENT
  Age: 57 Year
  Sex: Female
  Weight: 111.3 kg

DRUGS (7)
  1. VALIUM [Suspect]
     Indication: ANXIETY
     Route: 048
  2. PHENERGAN W/ CODEINE [Suspect]
     Route: 048
  3. BUPROPION XR [Concomitant]
  4. LEXAPRO [Concomitant]
  5. TRAZODONE [Concomitant]
  6. PROMETHAZINE [Concomitant]
  7. ASA [Concomitant]

REACTIONS (4)
  - Somnolence [None]
  - Lethargy [None]
  - Hypercapnia [None]
  - Mental status changes [None]
